FAERS Safety Report 9107950 (Version 1)
Quarter: 2013Q1

REPORT INFORMATION
  Report Type: Spontaneous
  Country: CN (occurrence: CN)
  Receive Date: 20130221
  Receipt Date: 20130221
  Transmission Date: 20140127
  Serious: Yes (Other)
  Sender: FDA-Public Use
  Company Number: CN-PFIZER INC-2013064238

PATIENT
  Sex: Male

DRUGS (1)
  1. LIPITOR [Suspect]
     Indication: DIABETIC VASCULAR DISORDER
     Dosage: 20 MG, DAILY
     Route: 048
     Dates: start: 201111, end: 201207

REACTIONS (3)
  - Muscle enzyme increased [Not Recovered/Not Resolved]
  - Drug intolerance [Unknown]
  - Myalgia [Recovered/Resolved]
